FAERS Safety Report 8506164-2 (Version None)
Quarter: 2012Q3

REPORT INFORMATION
  Report Type: 
  Country: None (occurrence: None)
  Receive Date: 20120712
  Receipt Date: 20120709
  Transmission Date: 20120928
  Serious: Yes (Hospitalization, Other)
  Sender: FDA-Public Use
  Company Number: PHHY2012DE051472

PATIENT
  Age: 63 Year
  Sex: Female
  Weight: 63 kg

DRUGS (1)
  1. TASIGNA [Suspect]
     Indication: CHRONIC MYELOID LEUKAEMIA
     Dosage: 300 MG, BID
     Route: 048
     Dates: start: 20091101

REACTIONS (3)
  - IN-STENT ARTERIAL RESTENOSIS [None]
  - PERIPHERAL ARTERIAL OCCLUSIVE DISEASE [None]
  - FEMORAL ARTERIAL STENOSIS [None]
